FAERS Safety Report 13082274 (Version 1)
Quarter: 2017Q1

REPORT INFORMATION
  Report Type: Report from Study
  Country: US (occurrence: US)
  Receive Date: 20170103
  Receipt Date: 20170103
  Transmission Date: 20170428
  Serious: Yes (Death)
  Sender: FDA-Public Use
  Company Number: US-PFIZER INC-2016604415

PATIENT

DRUGS (6)
  1. DOCETAXEL. [Suspect]
     Active Substance: DOCETAXEL
     Indication: SQUAMOUS CELL CARCINOMA OF HEAD AND NECK
     Dosage: 60 MG/M2, CYCLIC (D1, 22)
  2. GEFITINIB [Suspect]
     Active Substance: GEFITINIB
     Dosage: 250 MG, DAILY (BEGINNING WEEK 8)
     Route: 048
  3. CARBOPLATIN. [Suspect]
     Active Substance: CARBOPLATIN
     Indication: SQUAMOUS CELL CARCINOMA OF HEAD AND NECK
     Dosage: AUC 5.0 D1, 22
  4. FLUOROURACIL. [Suspect]
     Active Substance: FLUOROURACIL
     Indication: SQUAMOUS CELL CARCINOMA OF HEAD AND NECK
     Dosage: 200 MG/M2, 24-HOUR CI, D1-43
  5. DOCETAXEL. [Suspect]
     Active Substance: DOCETAXEL
     Dosage: 20 MG/M2, WEEKLY (6 DOSES)
  6. GEFITINIB [Suspect]
     Active Substance: GEFITINIB
     Indication: SQUAMOUS CELL CARCINOMA OF HEAD AND NECK
     Dosage: 250 MG, CYCLIC (DAILY (D1-43))
     Route: 048

REACTIONS (1)
  - Death [Fatal]
